FAERS Safety Report 10222555 (Version 1)
Quarter: 2014Q2

REPORT INFORMATION
  Report Type: Spontaneous
  Country: IT (occurrence: IT)
  Receive Date: 20140606
  Receipt Date: 20140606
  Transmission Date: 20141212
  Serious: Yes (Other)
  Sender: FDA-Public Use
  Company Number: IT-ACTAVIS-2013-25377

PATIENT
  Age: 52 Year
  Sex: Female

DRUGS (4)
  1. AMOXICILLIN-CLAVULANATE (UNKNOWN) [Suspect]
     Indication: TOOTH ABSCESS
     Route: 048
     Dates: start: 20130923, end: 20130926
  2. NIMESULIDE (UNKNOWN) [Suspect]
     Indication: TOOTH ABSCESS
     Route: 048
     Dates: start: 20130923, end: 20130926
  3. OKI 80 MG GRANULES FOR ORAL SOLUTION (DOMPE? SPA) (ATC M01AE03) [Suspect]
     Indication: TOOTH ABSCESS
     Route: 048
     Dates: start: 20130923, end: 20130926
  4. DICLOFENAC (UNKNOWN) [Suspect]
     Indication: TOOTH ABSCESS
     Route: 048
     Dates: start: 20130923, end: 20130926

REACTIONS (2)
  - Angioedema [Recovering/Resolving]
  - Urticaria [Recovering/Resolving]
